FAERS Safety Report 20895072 (Version 3)
Quarter: 2022Q3

REPORT INFORMATION
  Report Type: Spontaneous
  Country: GB (occurrence: GB)
  Receive Date: 20220531
  Receipt Date: 20220906
  Transmission Date: 20221026
  Serious: Yes (Death, Other)
  Sender: FDA-Public Use
  Company Number: GB-GLAXOSMITHKLINE-GB2022EME085564

PATIENT

DRUGS (1)
  1. NUCALA [Suspect]
     Active Substance: MEPOLIZUMAB
     Indication: Product used for unknown indication
     Dosage: UNK
     Dates: start: 20220521

REACTIONS (7)
  - Sepsis [Fatal]
  - Pulmonary oedema [Fatal]
  - Cardiac failure congestive [Fatal]
  - Arteriosclerosis coronary artery [Fatal]
  - Aortic valve disease [Fatal]
  - Obesity [Fatal]
  - Chronic kidney disease [Fatal]
